FAERS Safety Report 8798590 (Version 1)
Quarter: 2012Q4

REPORT INFORMATION
  Report Type: Report from Study
  Country: JP (occurrence: JP)
  Receive Date: 20120920
  Receipt Date: 20120920
  Transmission Date: 20130627
  Serious: Yes (Hospitalization, Other)
  Sender: FDA-Public Use
  Company Number: JP-VERTEX PHARMACEUTICAL INC.-AE-2012-007093

PATIENT
  Age: 64 Year
  Sex: Female

DRUGS (18)
  1. VX-950 [Suspect]
     Indication: HEPATITIS C
     Dosage: 1500 mg, qd
     Route: 048
     Dates: start: 20120306, end: 20120401
  2. VX-950 [Suspect]
     Dosage: 1000 mg, qd
     Route: 048
     Dates: start: 20120516, end: 20120530
  3. RIBAVIRIN [Suspect]
     Indication: HEPATITIS C
     Dosage: 600 mg, qd
     Route: 048
     Dates: start: 20120306, end: 20120327
  4. RIBAVIRIN [Suspect]
     Dosage: 400 mg, qd
     Route: 048
     Dates: start: 20120328, end: 20120410
  5. RIBAVIRIN [Suspect]
     Dosage: 200 mg, qd
     Route: 048
     Dates: start: 20120411, end: 20120501
  6. RIBAVIRIN [Suspect]
     Dosage: 200 mg, UNK
     Route: 048
     Dates: start: 20120516
  7. RIBAVIRIN [Suspect]
     Dosage: 400 mg, qd
     Route: 048
     Dates: start: 20120620, end: 20120829
  8. PEGINTERFERON ALFA-2B [Suspect]
     Indication: HEPATITIS C
     Dosage: 1.5 UNK, UNK
     Route: 058
     Dates: start: 20120306, end: 20120501
  9. PEGINTERFERON ALFA-2B [Suspect]
     Dosage: 1.5 UNK, UNK
     Route: 058
     Dates: start: 20120516, end: 20120829
  10. METHYCOBAL [Concomitant]
     Dosage: 1.5 mg, qd
     Route: 048
  11. OPALMON [Concomitant]
     Dosage: 15 ?g, qd
     Route: 048
  12. LIVALO [Concomitant]
     Dosage: 1 mg, qd
     Route: 048
  13. EPADEL S [Concomitant]
     Dosage: 1800 mg, qd
     Route: 048
  14. FEROTYM [Concomitant]
     Dosage: 100 mg, qd
     Route: 048
  15. CLARITIN REDITABS [Concomitant]
     Dosage: 10 mg, qd
     Route: 048
  16. GOODMIN [Concomitant]
     Dosage: 0.25 DF, qd
     Route: 048
  17. MAGLAX [Concomitant]
     Dosage: 1.8 g, qd
     Route: 048
  18. MAGLAX [Concomitant]
     Dosage: 900 mg, qd
     Route: 048

REACTIONS (6)
  - Bacterial infection [Recovered/Resolved]
  - Presyncope [Recovered/Resolved]
  - Anaemia [Not Recovered/Not Resolved]
  - Anaemia [Not Recovered/Not Resolved]
  - Anaemia [Not Recovered/Not Resolved]
  - Platelet count decreased [Recovered/Resolved]
